FAERS Safety Report 10577080 (Version 1)
Quarter: 2014Q4

REPORT INFORMATION
  Report Type: Spontaneous
  Country: US (occurrence: US)
  Receive Date: 20141111
  Receipt Date: 20141111
  Transmission Date: 20150529
  Serious: No
  Sender: FDA-Public Use
  Company Number: US-GLAXOSMITHKLINE-US2014GSK008170

PATIENT
  Age: 64 Year

DRUGS (2)
  1. NICODERM CQ [Suspect]
     Active Substance: NICOTINE
     Indication: SMOKING CESSATION THERAPY
     Dosage: 14 MG, UNK
     Route: 062
     Dates: start: 20140920
  2. NICODERM CQ [Suspect]
     Active Substance: NICOTINE
     Indication: SMOKING CESSATION THERAPY
     Dosage: 2 PATCHES
     Route: 062

REACTIONS (7)
  - Application site irritation [Recovered/Resolved]
  - Application site reaction [Recovered/Resolved]
  - Application site burn [Recovered/Resolved]
  - Application site pruritus [Not Recovered/Not Resolved]
  - Application site rash [Recovered/Resolved]
  - Application site urticaria [Recovered/Resolved]
  - Application site erythema [Recovered/Resolved]
